FAERS Safety Report 4985670-1 (Version None)
Quarter: 2006Q2

REPORT INFORMATION
  Report Type: 
  Country: None (occurrence: None)
  Receive Date: 20060428
  Receipt Date: 20050815
  Transmission Date: 20061013
  Serious: No
  Sender: FDA-Public Use
  Company Number: US-GLAXOSMITHKLINE-A0570233A

PATIENT
  Age: 41 Year
  Sex: Female

DRUGS (4)
  1. ZOFRAN [Suspect]
     Dosage: 4MG UNKNOWN
     Route: 042
     Dates: start: 20050815, end: 20050815
  2. PEPCID [Concomitant]
  3. VERSED [Concomitant]
  4. LIDOCAINE [Concomitant]

REACTIONS (2)
  - ERYTHEMA [None]
  - RETCHING [None]
